FAERS Safety Report 5913129-3 (Version None)
Quarter: 2008Q4

REPORT INFORMATION
  Report Type: 
  Country: None (occurrence: None)
  Receive Date: 20081006
  Receipt Date: 20080909
  Transmission Date: 20090506
  Serious: Yes (Death)
  Sender: FDA-Public Use
  Company Number: OTH-PAT-2008002

PATIENT
  Age: 20 Year
  Sex: Female

DRUGS (3)
  1. CYSTADANE [Suspect]
     Indication: HOMOCYSTINURIA
     Dosage: 6GM (4 X DAY) ORAL
     Route: 048
  2. REVATIO [Concomitant]
  3. LETAIRIS [Concomitant]

REACTIONS (1)
  - DEATH [None]
